FAERS Safety Report 18257831 (Version 1)
Quarter: 2020Q3

REPORT INFORMATION
  Report Type: Spontaneous
  Country: IE (occurrence: BR)
  Receive Date: 20200911
  Receipt Date: 20200911
  Transmission Date: 20201103
  Serious: Yes (Other)
  Sender: FDA-Public Use
  Company Number: BR-SHIRE-BR202029279

PATIENT

DRUGS (1)
  1. VENVANSE [Suspect]
     Active Substance: LISDEXAMFETAMINE DIMESYLATE
     Indication: PRODUCT USED FOR UNKNOWN INDICATION
     Route: 065

REACTIONS (10)
  - Product quality issue [Unknown]
  - Constipation [Unknown]
  - Suicidal ideation [Unknown]
  - Motion sickness [Unknown]
  - Somnolence [Unknown]
  - Patient dissatisfaction with treatment [Unknown]
  - Panic disorder [Unknown]
  - Nausea [Unknown]
  - Drug ineffective [Unknown]
  - Anxiety [Unknown]

NARRATIVE: CASE EVENT DATE: 202004
